FAERS Safety Report 9323330 (Version 1)
Quarter: 2013Q2

REPORT INFORMATION
  Report Type: Spontaneous
  Country: US (occurrence: US)
  Receive Date: 20130603
  Receipt Date: 20130603
  Transmission Date: 20140414
  Serious: No
  Sender: FDA-Public Use
  Company Number: US-009507513-1305USA017027

PATIENT
  Sex: Male
  Weight: 74.83 kg

DRUGS (5)
  1. PEGINTRON [Suspect]
     Dosage: 120 MICROGRAM, QW, 120 MICROGRAM PER 0.5 ML
     Route: 058
  2. RIBAPAK [Suspect]
     Dosage: 800/DAY
  3. OXYCODONE [Concomitant]
     Dosage: 15 MILLGIRAMS
  4. XANAX [Concomitant]
     Dosage: 1 MILLIGRAM
  5. ATENOLOL [Concomitant]
     Dosage: 25 MILLIGRAM

REACTIONS (6)
  - Bone pain [Unknown]
  - Weight decreased [Unknown]
  - Pruritus [Unknown]
  - Depressed mood [Unknown]
  - Depression [Unknown]
  - Dry skin [Unknown]
